FAERS Safety Report 17702445 (Version 3)
Quarter: 2020Q3

REPORT INFORMATION
  Report Type: Spontaneous
  Country: DE (occurrence: DE)
  Receive Date: 20200423
  Receipt Date: 20200723
  Transmission Date: 20201102
  Serious: Yes (Other)
  Sender: FDA-Public Use
  Company Number: NVSC2020DE107737

PATIENT
  Sex: Female
  Weight: 99 kg

DRUGS (8)
  1. VALSARTAN. [Suspect]
     Active Substance: VALSARTAN
     Indication: PRODUCT USED FOR UNKNOWN INDICATION
     Dosage: 160 MG, QD (80 MILLIGRAM, BID (2 X DAILY)(ONCE IN MORNING AND ONCE IN EVENING))
     Route: 048
     Dates: start: 2019
  2. TORASEMID [Concomitant]
     Active Substance: TORSEMIDE
     Indication: PRODUCT USED FOR UNKNOWN INDICATION
     Dosage: 10 MG, QD
     Route: 065
  3. EBRANTIL [Concomitant]
     Active Substance: URAPIDIL
     Indication: PRODUCT USED FOR UNKNOWN INDICATION
     Dosage: 120 MG, QD (60 MILLIGRAM, BID, TWICE DAILY (IN THE MORNING AND IN THE EVENING)
     Route: 065
  4. AMLODIPIN [Concomitant]
     Active Substance: AMLODIPINE BESYLATE
     Indication: PRODUCT USED FOR UNKNOWN INDICATION
     Dosage: 10 MG, QD
     Route: 065
  5. PREGABALIN. [Concomitant]
     Active Substance: PREGABALIN
     Indication: PRODUCT USED FOR UNKNOWN INDICATION
     Dosage: 150 MG, QD (75 MILLIGRAM, BID (TWICE DAILY (IN THE MORNING AND IN THE EVENING))
     Route: 065
  6. METOHEXAL [Concomitant]
     Active Substance: METOPROLOL
     Indication: PRODUCT USED FOR UNKNOWN INDICATION
     Dosage: 100 MG, QD (50 MILLIGRAM, BID (TWICE DAILY (IN THE MORNING AND IN THE EVENING), EACH TIME 1/2))
     Route: 065
  7. METFORMIN [Concomitant]
     Active Substance: METFORMIN HYDROCHLORIDE
     Indication: PRODUCT USED FOR UNKNOWN INDICATION
     Dosage: 2000 MG, QD (1000 MILLIGRAM, BID (TWICE DAILY (IN THE MORNING AND IN THE EVENING, EACH TIME 1/2))
     Route: 065
  8. CANDESARTAN. [Concomitant]
     Active Substance: CANDESARTAN
     Indication: PRODUCT USED FOR UNKNOWN INDICATION
     Dosage: 32 MG, QD (16 MILLIGRAM, BID (TWICE DAILY (IN THE MORNING AND IN THE EVENING))
     Route: 065

REACTIONS (4)
  - Fear of disease [Unknown]
  - Recalled product administered [Unknown]
  - Quality of life decreased [Unknown]
  - Mental impairment [Unknown]
